FAERS Safety Report 12574035 (Version 3)
Quarter: 2018Q3

REPORT INFORMATION
  Report Type: Spontaneous
  Country: US (occurrence: US)
  Receive Date: 20160720
  Receipt Date: 20180920
  Transmission Date: 20181010
  Serious: Yes (Other)
  Sender: FDA-Public Use
  Company Number: US-JNJFOC-20160711195

PATIENT

DRUGS (6)
  1. RITUXIMAB. [Suspect]
     Active Substance: RITUXIMAB
     Indication: DIFFUSE LARGE B-CELL LYMPHOMA
     Route: 042
  2. DOXORUBICIN HYDROCHLORIDE. [Suspect]
     Active Substance: DOXORUBICIN HYDROCHLORIDE
     Indication: DIFFUSE LARGE B-CELL LYMPHOMA
     Route: 042
  3. VINCRISTINE [Suspect]
     Active Substance: VINCRISTINE
     Indication: DIFFUSE LARGE B-CELL LYMPHOMA
     Route: 042
  4. PREDNISONE. [Suspect]
     Active Substance: PREDNISONE
     Indication: DIFFUSE LARGE B-CELL LYMPHOMA
     Route: 048
  5. CYCLOPHOSPHAMIDE. [Suspect]
     Active Substance: CYCLOPHOSPHAMIDE
     Indication: DIFFUSE LARGE B-CELL LYMPHOMA
     Route: 042
  6. EVEROLIMUS. [Suspect]
     Active Substance: EVEROLIMUS
     Indication: DIFFUSE LARGE B-CELL LYMPHOMA
     Route: 048

REACTIONS (30)
  - Thrombocytopenia [Unknown]
  - Seizure [Unknown]
  - Anaemia [Unknown]
  - Urinary tract infection [Unknown]
  - Hypophosphataemia [Unknown]
  - Nausea [Unknown]
  - Alopecia [Unknown]
  - Embolism [Unknown]
  - Hypertriglyceridaemia [Unknown]
  - Hyponatraemia [Unknown]
  - Weight decreased [Unknown]
  - Neutropenia [Unknown]
  - Lung infection [Unknown]
  - Product use in unapproved indication [Unknown]
  - Hypoxia [Unknown]
  - Diarrhoea [Unknown]
  - Off label use [Unknown]
  - Leukopenia [Unknown]
  - Sepsis [Unknown]
  - Leukocytosis [Unknown]
  - Hyperglycaemia [Unknown]
  - Hypocalcaemia [Unknown]
  - Febrile neutropenia [Unknown]
  - Lymphopenia [Unknown]
  - Hypercholesterolaemia [Unknown]
  - Dermatitis acneiform [Unknown]
  - Pneumonitis [Unknown]
  - Fatigue [Unknown]
  - Dry skin [Unknown]
  - Rash maculo-papular [Unknown]
